FAERS Safety Report 11280234 (Version 1)
Quarter: 2015Q3

REPORT INFORMATION
  Report Type: Spontaneous
  Country: US (occurrence: US)
  Receive Date: 20150717
  Receipt Date: 20150717
  Transmission Date: 20151125
  Serious: No
  Sender: FDA-Public Use
  Company Number: US-JNJFOC-20140712245

PATIENT

DRUGS (3)
  1. ARA-C [Suspect]
     Active Substance: CYTARABINE
     Indication: ACUTE MYELOID LEUKAEMIA
     Dosage: ON DAYS 1-10
     Route: 058
  2. DECITABINE. [Suspect]
     Active Substance: DECITABINE
     Indication: ACUTE MYELOID LEUKAEMIA
     Dosage: ON DAYS 1-5 FOR A MAXIMUM OF 18 CYCLES
     Route: 042
  3. CLADRIBINE. [Suspect]
     Active Substance: CLADRIBINE
     Indication: ACUTE MYELOID LEUKAEMIA
     Dosage: INDUCTION-OVER 1-2 HOURS ON DAYS 1-5. CONSOLIDATION/MAINTENANCE-2 CYCLES  OVER 1-2 HOURS ON DAYS 1-3
     Route: 042

REACTIONS (7)
  - Rash [Unknown]
  - Nausea [Unknown]
  - Diarrhoea [Unknown]
  - Mucosal inflammation [Unknown]
  - Constipation [Unknown]
  - Vomiting [Unknown]
  - Blood bilirubin increased [Unknown]
